FAERS Safety Report 20887564 (Version 3)
Quarter: 2022Q2

REPORT INFORMATION
  Report Type: Spontaneous
  Country: US (occurrence: US)
  Receive Date: 20220528
  Receipt Date: 20220619
  Transmission Date: 20220721
  Serious: No
  Sender: FDA-Public Use
  Company Number: US-JNJFOC-20220547966

PATIENT
  Age: 53 Year
  Sex: Male
  Weight: 105.78 kg

DRUGS (9)
  1. STELARA [Suspect]
     Active Substance: USTEKINUMAB
     Indication: Psoriatic arthropathy
     Route: 058
     Dates: start: 20211027
  2. STELARA [Suspect]
     Active Substance: USTEKINUMAB
     Indication: Psoriasis
  3. STELARA [Suspect]
     Active Substance: USTEKINUMAB
     Indication: Rheumatoid arthritis
  4. METHOTREXATE [Concomitant]
     Active Substance: METHOTREXATE
  5. CRANBERRY [Concomitant]
     Active Substance: CRANBERRY
  6. FOLIC ACID [Concomitant]
     Active Substance: FOLIC ACID
  7. ASCORBIC ACID [Concomitant]
     Active Substance: ASCORBIC ACID
  8. ERGOCALCIFEROL [Concomitant]
     Active Substance: ERGOCALCIFEROL
  9. GABAPENTIN [Concomitant]
     Active Substance: GABAPENTIN

REACTIONS (3)
  - Cystitis [Unknown]
  - Product storage error [Unknown]
  - Product dose omission issue [Unknown]

NARRATIVE: CASE EVENT DATE: 20220501
